FAERS Safety Report 4735845-1 (Version None)
Quarter: 2005Q3

REPORT INFORMATION
  Report Type: 
  Country: None (occurrence: None)
  Receive Date: 20050804
  Receipt Date: 20050804
  Transmission Date: 20060218
  Serious: Yes (Death)
  Sender: FDA-Public Use
  Company Number: None

PATIENT
  Sex: Male
  Weight: 73.3466 kg

DRUGS (8)
  1. PACLITAXEL [Suspect]
     Indication: GERM CELL CANCER
     Dosage: 170MG/M2 Q 14 D, IV
     Route: 042
     Dates: start: 20050613, end: 20050627
  2. GEMCITABINE [Suspect]
     Indication: GERM CELL CANCER
     Dosage: 800MG/M2 Q 14D , IV
     Route: 042
     Dates: start: 20050613, end: 20050627
  3. OXALIPLATIN [Suspect]
     Indication: GERM CELL CANCER
     Dosage: 100MG/M2 Q 14D, IV
     Route: 042
     Dates: start: 20050613, end: 20050627
  4. NEURONTIN [Concomitant]
  5. HYDROCODONE [Concomitant]
  6. PEPCID [Concomitant]
  7. DALANTIN [Concomitant]
  8. OXYCONTIN [Concomitant]

REACTIONS (4)
  - LOSS OF CONSCIOUSNESS [None]
  - MENTAL STATUS CHANGES [None]
  - MOANING [None]
  - PNEUMONIA ASPIRATION [None]
